FAERS Safety Report 11309175 (Version 4)
Quarter: 2015Q3

REPORT INFORMATION
  Report Type: Spontaneous
  Country: GB (occurrence: GB)
  Receive Date: 20150724
  Receipt Date: 20150915
  Transmission Date: 20151125
  Serious: Yes (Hospitalization)
  Sender: FDA-Public Use
  Company Number: GB-PFIZER INC-2015240965

PATIENT
  Age: 26 Year
  Sex: Male

DRUGS (3)
  1. SALBUTAMOL [Concomitant]
     Active Substance: ALBUTEROL
     Dosage: UNK
  2. PHENOXYMETHYLPENICILLIN [Concomitant]
     Active Substance: PENICILLIN V
     Indication: CELLULITIS
     Dosage: 500 MG, 4X/DAY
     Route: 048
  3. FLUCONAZOLE. [Suspect]
     Active Substance: FLUCONAZOLE
     Indication: CELLULITIS
     Dosage: 50 MG, 4X/DAY
     Route: 048
     Dates: start: 20150626, end: 20150630

REACTIONS (3)
  - Drug dispensing error [Unknown]
  - Cellulitis [Recovered/Resolved]
  - Liver function test abnormal [Unknown]

NARRATIVE: CASE EVENT DATE: 201506
